FAERS Safety Report 8343202-4 (Version None)
Quarter: 2012Q2

REPORT INFORMATION
  Report Type: 
  Country: None (occurrence: None)
  Receive Date: 20120508
  Receipt Date: 20120507
  Transmission Date: 20120825
  Serious: Yes (Other)
  Sender: FDA-Public Use
  Company Number: CN-PFIZER INC-2012110313

PATIENT
  Age: 35 Year
  Sex: Male

DRUGS (1)
  1. ZIPRASIDONE HYDROCHLORIDE [Suspect]
     Dosage: 120 MG, DAILY
     Route: 048
     Dates: start: 20120315

REACTIONS (3)
  - MUSCULAR WEAKNESS [None]
  - HALLUCINATION, AUDITORY [None]
  - PAIN IN EXTREMITY [None]
